FAERS Safety Report 6624792-6 (Version None)
Quarter: 2010Q1

REPORT INFORMATION
  Report Type: 
  Country: None (occurrence: None)
  Receive Date: 20100310
  Receipt Date: 20100304
  Transmission Date: 20100710
  Serious: Yes (Other)
  Sender: FDA-Public Use
  Company Number: US-ROCHE-689747

PATIENT
  Sex: Male
  Weight: 88.5 kg

DRUGS (2)
  1. TORADOL [Suspect]
     Route: 042
     Dates: start: 20091113
  2. VICODIN [Concomitant]

REACTIONS (1)
  - SENSORY DISTURBANCE [None]
